FAERS Safety Report 9033094 (Version 4)
Quarter: 2014Q1

REPORT INFORMATION
  Report Type: Spontaneous
  Country: US (occurrence: US)
  Receive Date: 20130128
  Receipt Date: 20140325
  Transmission Date: 20141002
  Serious: Yes (Hospitalization, Other)
  Sender: FDA-Public Use
  Company Number: US-PFIZER INC-2013030715

PATIENT
  Age: 55 Year
  Sex: Female

DRUGS (4)
  1. CORTEF [Suspect]
     Dosage: 10 MG, 2X/DAY
     Dates: start: 20110505
  2. LEXAPRO [Concomitant]
     Dosage: UNK
  3. LEVOXYL [Concomitant]
     Dosage: UNK
  4. INSULIN [Concomitant]
     Dosage: UNK

REACTIONS (23)
  - Mental disorder [Not Recovered/Not Resolved]
  - Convulsion [Not Recovered/Not Resolved]
  - Brain injury [Not Recovered/Not Resolved]
  - Speech disorder [Not Recovered/Not Resolved]
  - Reading disorder [Not Recovered/Not Resolved]
  - Mental impairment [Not Recovered/Not Resolved]
  - Dysgraphia [Not Recovered/Not Resolved]
  - Nervous system disorder [Not Recovered/Not Resolved]
  - Musculoskeletal disorder [Not Recovered/Not Resolved]
  - Psychotic disorder [Unknown]
  - Memory impairment [Unknown]
  - Meningioma [Unknown]
  - Muscle atrophy [Unknown]
  - Amnesia [Not Recovered/Not Resolved]
  - Feeling abnormal [Not Recovered/Not Resolved]
  - General physical health deterioration [Unknown]
  - Inappropriate affect [Unknown]
  - Crying [Unknown]
  - Screaming [Unknown]
  - Dependent personality disorder [Unknown]
  - Malaise [Unknown]
  - Immune system disorder [Unknown]
  - Phobia of driving [Unknown]
